FAERS Safety Report 9756301 (Version 2)
Quarter: 2015Q1

REPORT INFORMATION
  Report Type: Spontaneous
  Country: US (occurrence: US)
  Receive Date: 20131213
  Receipt Date: 20150210
  Transmission Date: 20150721
  Serious: No
  Sender: FDA-Public Use
  Company Number: US-GLAXOSMITHKLINE-A1037814A

PATIENT

DRUGS (1)
  1. NICODERM CQ [Suspect]
     Active Substance: NICOTINE
     Indication: EX-TOBACCO USER
     Dates: start: 20130812

REACTIONS (19)
  - Throat tightness [Recovered/Resolved]
  - Pruritus [Recovered/Resolved]
  - Paraesthesia oral [Unknown]
  - Malaise [Unknown]
  - Erythema [Recovered/Resolved]
  - Eye swelling [Unknown]
  - Mouth swelling [Not Recovered/Not Resolved]
  - Aphonia [Recovered/Resolved]
  - Lip disorder [Unknown]
  - Drug hypersensitivity [Recovered/Resolved]
  - Swelling face [Not Recovered/Not Resolved]
  - Feeling abnormal [Recovered/Resolved]
  - Aphasia [Recovered/Resolved]
  - Urticaria [Not Recovered/Not Resolved]
  - Swelling [Not Recovered/Not Resolved]
  - Dizziness [Recovered/Resolved]
  - Anxiety [Recovered/Resolved]
  - Rash [Unknown]
  - Dyspnoea [Unknown]

NARRATIVE: CASE EVENT DATE: 20130814
